FAERS Safety Report 4814359-4 (Version None)
Quarter: 2005Q4

REPORT INFORMATION
  Report Type: 
  Country: None (occurrence: None)
  Receive Date: 20051028
  Receipt Date: 20050811
  Transmission Date: 20060501
  Serious: No
  Sender: FDA-Public Use
  Company Number: US-GLAXOSMITHKLINE-A0569831A

PATIENT
  Age: 69 Year
  Sex: Female
  Weight: 61.4 kg

DRUGS (5)
  1. ADVAIR DISKUS 100/50 [Suspect]
     Indication: ASTHMA
     Route: 055
  2. COMBIVENT [Concomitant]
  3. OXYGEN [Concomitant]
  4. ALBUTEROL [Concomitant]
  5. ALLEGRA [Concomitant]

REACTIONS (2)
  - DRUG INEFFECTIVE [None]
  - WHEEZING [None]
